FAERS Safety Report 6470698-5 (Version None)
Quarter: 2009Q4

REPORT INFORMATION
  Report Type: 
  Country: None (occurrence: None)
  Receive Date: 20091203
  Receipt Date: 20091123
  Transmission Date: 20100525
  Serious: Yes (Other)
  Sender: FDA-Public Use
  Company Number: A0795816A

PATIENT
  Sex: Female
  Weight: 92 kg

DRUGS (4)
  1. ELTROMBOPAG [Suspect]
     Indication: THROMBOCYTOPENIA
     Dosage: 25MG PER DAY
     Route: 048
     Dates: start: 20090504
  2. PEG-INTRON [Suspect]
     Dosage: 150MCG WEEKLY
     Route: 058
     Dates: start: 20090504
  3. ELTROMBOPAG [Suspect]
     Dosage: 25MG PER DAY
     Route: 048
     Dates: start: 20090420, end: 20090503
  4. REBETOL [Suspect]
     Route: 048
     Dates: start: 20090504

REACTIONS (1)
  - RETINAL VASCULAR DISORDER [None]
